FAERS Safety Report 7047285-3 (Version None)
Quarter: 2010Q4

REPORT INFORMATION
  Report Type: 
  Country: None (occurrence: None)
  Receive Date: 20101015
  Receipt Date: 20101001
  Transmission Date: 20110411
  Serious: Yes (Other)
  Sender: FDA-Public Use
  Company Number: PHHY2010AU65514

PATIENT
  Sex: Female

DRUGS (1)
  1. EXFORGE [Suspect]
     Dosage: 160/5 MG; HALF TABLET PER DAY

REACTIONS (3)
  - EMOTIONAL DISTRESS [None]
  - FEELING ABNORMAL [None]
  - LACRIMATION INCREASED [None]
